FAERS Safety Report 10434065 (Version 3)
Quarter: 2014Q4

REPORT INFORMATION
  Report Type: Spontaneous
  Country: JP (occurrence: JP)
  Receive Date: 20140905
  Receipt Date: 20141003
  Transmission Date: 20150528
  Serious: Yes (Life-Threatening)
  Sender: FDA-Public Use
  Company Number: JP-PFIZER INC-2013366204

PATIENT
  Age: 23 Year
  Sex: Female
  Weight: 55 kg

DRUGS (3)
  1. MEROPENEM HYDRATE [Concomitant]
     Active Substance: MEROPENEM
     Dosage: UNK
     Route: 061
     Dates: start: 20121027, end: 20121027
  2. ZOSYN [Suspect]
     Active Substance: PIPERACILLIN SODIUM\TAZOBACTAM SODIUM
     Dosage: UNK
     Route: 061
     Dates: start: 20121027, end: 20121027
  3. CEFMETAZOLE SODIUM [Suspect]
     Active Substance: CEFMETAZOLE SODIUM
     Dosage: UNK
     Route: 061
     Dates: start: 20121027, end: 20121027

REACTIONS (2)
  - Urticaria contact [Recovered/Resolved]
  - Occupational exposure to product [Recovered/Resolved]

NARRATIVE: CASE EVENT DATE: 20121027
